FAERS Safety Report 5086166-1 (Version None)
Quarter: 2006Q3

REPORT INFORMATION
  Report Type: 
  Country: None (occurrence: None)
  Receive Date: 20060818
  Receipt Date: 20060809
  Transmission Date: 20061208
  Serious: Yes (Hospitalization)
  Sender: FDA-Public Use
  Company Number: 2006094948

PATIENT
  Age: 92 Year
  Sex: Female

DRUGS (13)
  1. XANAX [Suspect]
     Indication: ANXIETY
     Dosage: 0.75 MG (0.25 MG, 3 IN 1 D); ORAL
     Route: 048
     Dates: start: 20060613, end: 20060618
  2. AMOXICILLIN TRIHYDRATE [Suspect]
     Indication: PYELONEPHRITIS
     Dosage: 3 GRAM (1 GRAM, 3 IN 1 D), UNKNOWN
     Dates: start: 20060612, end: 20060613
  3. ROCEPHIN [Suspect]
     Indication: PYELONEPHRITIS
     Dosage: (DAILY); INTRAVENOUS
     Route: 042
     Dates: start: 20060610, end: 20060611
  4. BACTRIM DS [Suspect]
     Indication: PYELONEPHRITIS
     Dosage: 2 DOSE FORM (DAILY); ORAL
     Route: 048
     Dates: start: 20060612, end: 20060615
  5. OFLOXACIN [Concomitant]
  6. CIPROFLOXACIN [Concomitant]
  7. NEXIUM [Concomitant]
  8. TRANSIPEG (MACROGOL) [Concomitant]
  9. VITAMIN B-12 [Concomitant]
  10. TOBREX (TOBRAMYCIN SULFATE) [Concomitant]
  11. CEFIXIME CHEWABLE [Concomitant]
  12. AMOXICILIN (AMOXICILLIN) [Concomitant]
  13. PARACETAMOL [Concomitant]

REACTIONS (5)
  - ANXIETY [None]
  - ESCHERICHIA URINARY TRACT INFECTION [None]
  - HENOCH-SCHONLEIN PURPURA [None]
  - PYELONEPHRITIS [None]
  - STREPTOCOCCAL INFECTION [None]
